FAERS Safety Report 24218352 (Version 1)
Quarter: 2024Q3

REPORT INFORMATION
  Report Type: Spontaneous
  Country: US (occurrence: US)
  Receive Date: 20240816
  Receipt Date: 20240816
  Transmission Date: 20241017
  Serious: Yes (Other)
  Sender: BAYER
  Company Number: US-BAYER-2024A116501

PATIENT

DRUGS (2)
  1. ADEMPAS [Suspect]
     Active Substance: RIOCIGUAT
  2. UPTRAVI [Suspect]
     Active Substance: SELEXIPAG

REACTIONS (1)
  - Pulmonary hypertension [None]

NARRATIVE: CASE EVENT DATE: 20220101
